FAERS Safety Report 20992058 (Version 1)
Quarter: 2022Q2

REPORT INFORMATION
  Report Type: Spontaneous
  Country: CO (occurrence: MX)
  Receive Date: 20220622
  Receipt Date: 20220622
  Transmission Date: 20220721
  Serious: Yes (Hospitalization, Other)
  Sender: FDA-Public Use
  Company Number: CO-AMGEN-MEXSP2022102365

PATIENT
  Age: 9 Year
  Sex: Male

DRUGS (1)
  1. FILGRASTIM [Suspect]
     Active Substance: FILGRASTIM
     Indication: Infantile genetic agranulocytosis
     Dosage: 5 MICROGRAM/KILOGRAM, QD
     Route: 065

REACTIONS (14)
  - Respiratory tract infection [Unknown]
  - Abscess oral [Unknown]
  - Abscess limb [Unknown]
  - Anal abscess [Unknown]
  - Superficial vein prominence [Unknown]
  - Inguinal hernia [Unknown]
  - Thrombocytopenia [Unknown]
  - Pulmonary hypertension [Unknown]
  - Lymphopenia [Unknown]
  - Bone marrow failure [Unknown]
  - Hepatic fibrosis [Unknown]
  - Hepatic steatosis [Unknown]
  - Portal hypertension [Unknown]
  - Skin disorder [Unknown]
